FAERS Safety Report 10471534 (Version 4)
Quarter: 2015Q1

REPORT INFORMATION
  Report Type: Report from Study
  Country: US (occurrence: US)
  Receive Date: 20140923
  Receipt Date: 20150217
  Transmission Date: 20150720
  Serious: Yes (Death, Hospitalization, Other)
  Sender: FDA-Public Use
  Company Number: US-EXELIXIS-CABO-14004312

PATIENT
  Age: 82 Year
  Sex: Female

DRUGS (3)
  1. CABOZANTINIB [Suspect]
     Active Substance: CABOZANTINIB
     Indication: LUNG NEOPLASM MALIGNANT
     Dosage: 60 MG, QD
     Route: 048
     Dates: start: 20140329
  2. POTASSIUM [Concomitant]
     Active Substance: POTASSIUM
  3. CALCIUM [Concomitant]
     Active Substance: CALCIUM

REACTIONS (9)
  - Respiratory failure [Not Recovered/Not Resolved]
  - Mental status changes [Unknown]
  - Abdominal distension [Unknown]
  - Off label use [Unknown]
  - Malignant neoplasm progression [Fatal]
  - Decreased appetite [Unknown]
  - Constipation [Unknown]
  - Dysphagia [Unknown]
  - Oesophagitis [Unknown]

NARRATIVE: CASE EVENT DATE: 201403
